FAERS Safety Report 21228951 (Version 1)
Quarter: 2022Q3

REPORT INFORMATION
  Report Type: Report from Study
  Country: TH (occurrence: TH)
  Receive Date: 20220818
  Receipt Date: 20220818
  Transmission Date: 20221026
  Serious: Yes (Death, Hospitalization, Other)
  Sender: FDA-Public Use
  Company Number: TH-BAYER-2022A041660

PATIENT
  Age: 90 Year
  Sex: Male

DRUGS (1)
  1. NEXAVAR [Suspect]
     Active Substance: SORAFENIB
     Indication: Hepatocellular carcinoma
     Dosage: 200 MG, QD
     Dates: start: 20211228, end: 20220312

REACTIONS (7)
  - Death [Fatal]
  - Computerised tomogram abnormal [None]
  - Haemoptysis [None]
  - Productive cough [None]
  - Obstructive airways disorder [None]
  - Drug intolerance [None]
  - Off label use [Unknown]

NARRATIVE: CASE EVENT DATE: 20220312
